FAERS Safety Report 9537732 (Version 1)
Quarter: 2013Q3

REPORT INFORMATION
  Report Type: Spontaneous
  Country: HK (occurrence: HK)
  Receive Date: 20130919
  Receipt Date: 20130919
  Transmission Date: 20140515
  Serious: Yes (Other)
  Sender: FDA-Public Use
  Company Number: CHNY2013HK001961

PATIENT
  Sex: Female

DRUGS (2)
  1. LAMISIL [Suspect]
     Indication: TINEA PEDIS
     Dosage: UNK, UNK
  2. LAMISIL [Suspect]
     Indication: TINEA CRURIS

REACTIONS (5)
  - Skin necrosis [Recovered/Resolved]
  - Skin exfoliation [Recovered/Resolved]
  - Application site pain [Recovered/Resolved]
  - Application site pruritus [Recovered/Resolved]
  - Wrong technique in drug usage process [Unknown]
